FAERS Safety Report 9970667 (Version 1)
Quarter: 2014Q1

REPORT INFORMATION
  Report Type: Spontaneous
  Country: US (occurrence: None)
  Receive Date: 20140305
  Receipt Date: 20140305
  Transmission Date: 20141002
  Serious: Yes (Other)
  Sender: FDA-Public Use
  Company Number: None

PATIENT
  Age: 42 Year
  Sex: Female
  Weight: 61.24 kg

DRUGS (1)
  1. CLARITHROMYCIN 500MG TEVA USA [Suspect]
     Indication: PNEUMONIA
     Dosage: 2 PILLS
     Route: 048
     Dates: start: 20140217, end: 20140226

REACTIONS (5)
  - Fatigue [None]
  - Muscular weakness [None]
  - Tachycardia [None]
  - Chest discomfort [None]
  - Dizziness [None]
